FAERS Safety Report 10573615 (Version 1)
Quarter: 2014Q4

REPORT INFORMATION
  Report Type: Spontaneous
  Country: US (occurrence: None)
  Receive Date: 20141030
  Receipt Date: 20141030
  Transmission Date: 20150529
  Serious: Yes (Other)
  Sender: FDA-Public Use
  Company Number: PHEH2008US04949

PATIENT
  Age: 68 Year
  Sex: Female
  Weight: 113 kg

DRUGS (36)
  1. RECLAST [Suspect]
     Active Substance: ZOLEDRONIC ACID
     Indication: OSTEOPOROSIS
     Route: 042
  2. CLONAZEPAM (CLONAZEPAM) [Concomitant]
  3. CALCIUM (CALCIUM) [Concomitant]
     Active Substance: CALCIUM
  4. RANITIDINE HYDROCHLORIDE (RANITIDINE HYDROCHLORIDE) [Concomitant]
  5. GARCINA CAMBOGIA (GARCINA GUMMI-GUTTA) [Concomitant]
  6. TEMAZEPAM (TEMAZEPAM) [Concomitant]
     Active Substance: TEMAZEPAM
  7. CLONIDINE HYDROCHLORIDE (CLONIDINE HYDROCHLORIDE) [Concomitant]
  8. CO Q-10 (UBIDECARENONE) [Concomitant]
  9. COLACE [Concomitant]
     Active Substance: DOCUSATE SODIUM
  10. MAXZIDE (HYDROCHLOROTHIAZIDE,TRIAMTERENE) [Concomitant]
  11. ZINC SULPHATE (ZINC SULPHATE) [Concomitant]
  12. CINNAMON (CINNAMOMUM VERUM) [Concomitant]
  13. CELEBREX [Concomitant]
     Active Substance: CELECOXIB
  14. CYCLOBENZAPRINE HYDROCHLORIDE (CYCLOBENZAPRINE HYDROCHLORIDE) [Concomitant]
  15. VITAMIN D3 (CHOLECALCIFEROL) [Concomitant]
  16. ADVAIR DISKUS (FLUTICASONE PROPIONATE, SALMETEROL XINAFOATE) [Concomitant]
  17. VITAMIN E [Concomitant]
     Active Substance: .ALPHA.-TOCOPHEROL
  18. MAGNESIUM (MAGNESIUM) [Concomitant]
     Active Substance: MAGNESIUM
  19. SIMVASTATIN (SIMVASTATIN) [Concomitant]
     Active Substance: SIMVASTATIN
  20. ALLER TEC (CETIRIZINE HYDROCHLORIDE) [Concomitant]
  21. ASPIRIN (ACETYLSALICYLIC ACID) [Concomitant]
     Active Substance: ASPIRIN
  22. FLONASE [Concomitant]
     Active Substance: FLUTICASONE PROPIONATE
  23. ECHINACEA (ECHINACEA ANGUSTIFOLIA) [Concomitant]
  24. FOLIC ACID (FOLIC ACID) [Concomitant]
     Active Substance: FOLIC ACID
  25. KLOR-CON M10 (POTASSIUM CHLORIDE) [Concomitant]
  26. SENOKOT/SENNA ALSEXANDRINA (SENNA ALSEXANDRINA) [Concomitant]
  27. VITAMIN C [Concomitant]
     Active Substance: ASCORBIC ACID
  28. NEXUM (ESOMEPRAZOLE MAGNESIUM) [Concomitant]
  29. POTASSIUM (POTASSIUM) [Concomitant]
     Active Substance: POTASSIUM
  30. KRILL OIL (FISH OIL) [Concomitant]
  31. FOSAMAX [Concomitant]
     Active Substance: ALENDRONATE SODIUM
  32. ASPIRIN E.C (ACETYLSALICYLIC ACID) [Concomitant]
  33. LIBRAX (CHLORDIAZEPOXIDE, CLIDINIUM BROMIDE) [Concomitant]
  34. MIRALAX (MACROGOL) [Concomitant]
  35. GLUCOSAMINE (GLUCOSAMINE) [Concomitant]
     Active Substance: GLUCOSAMINE
  36. MULTIVIT/VITAMINS NOS (VITAMINS NOS) [Concomitant]

REACTIONS (12)
  - Fatigue [None]
  - Gastrooesophageal reflux disease [None]
  - Blood pressure increased [None]
  - Abdominal pain upper [None]
  - Dyspnoea [None]
  - Nausea [None]
  - Influenza like illness [None]
  - Malaise [None]
  - Back pain [None]
  - Headache [None]
  - Myalgia [None]
  - Fibromyalgia [None]

NARRATIVE: CASE EVENT DATE: 2009
